FAERS Safety Report 5000042-1 (Version None)
Quarter: 2006Q2

REPORT INFORMATION
  Report Type: 
  Country: None (occurrence: None)
  Receive Date: 20060501
  Receipt Date: 20060419
  Transmission Date: 20061013
  Serious: Yes (Hospitalization, Other)
  Sender: FDA-Public Use
  Company Number: 2006054842

PATIENT
  Age: 65 Year
  Sex: Male

DRUGS (3)
  1. SU-011, 248 (SUNITINIB MALEATE) [Suspect]
     Indication: RENAL CELL CARCINOMA STAGE UNSPECIFIED
     Dosage: 50 MG (50 MG, 1 IN 1 D), ORAL
     Route: 048
     Dates: start: 20060110, end: 20060118
  2. COZAAR [Concomitant]
  3. DURAGESIC-100 [Concomitant]

REACTIONS (3)
  - HYPOTHERMIA [None]
  - MALAISE [None]
  - SINUS BRADYCARDIA [None]
